FAERS Safety Report 9003775 (Version 1)
Quarter: 2013Q1

REPORT INFORMATION
  Report Type: Spontaneous
  Country: US (occurrence: US)
  Receive Date: 20130108
  Receipt Date: 20130108
  Transmission Date: 20140127
  Serious: No
  Sender: FDA-Public Use
  Company Number: US-GLAXOSMITHKLINE-A0977169A

PATIENT
  Age: 63 Year
  Sex: Female

DRUGS (10)
  1. LOVAZA [Suspect]
     Indication: BLOOD CHOLESTEROL INCREASED
     Dosage: 4CAP PER DAY
     Route: 048
     Dates: start: 2009
  2. LISINOPRIL [Concomitant]
  3. NORVASC [Concomitant]
  4. HCTZ [Concomitant]
  5. PLAVIX [Concomitant]
  6. ARICEPT [Concomitant]
  7. CELEXA [Concomitant]
  8. FIORICET [Concomitant]
  9. PERCOCET [Concomitant]
  10. ZOFRAN [Concomitant]

REACTIONS (1)
  - Therapeutic response unexpected [Unknown]
